FAERS Safety Report 14170320 (Version 1)
Quarter: 2017Q4

REPORT INFORMATION
  Report Type: Report from Study
  Country: JP (occurrence: JP)
  Receive Date: 20171108
  Receipt Date: 20171108
  Transmission Date: 20180321
  Serious: No
  Sender: FDA-Public Use
  Company Number: JP-ACTELION-A-CH2017-156588

PATIENT
  Age: 41 Year
  Sex: Female

DRUGS (9)
  1. OPSUMIT [Suspect]
     Active Substance: MACITENTAN
     Indication: PULMONARY ARTERIAL HYPERTENSION
     Dosage: 10 MG, QD
     Route: 048
     Dates: start: 20160823
  2. ADOAIR [Concomitant]
     Active Substance: FLUTICASONE PROPIONATE\SALMETEROL XINAFOATE
  3. LASIX [Concomitant]
     Active Substance: FUROSEMIDE
  4. BERASUS [Concomitant]
     Active Substance: BERAPROST SODIUM
  5. FEBURIC [Concomitant]
     Active Substance: FEBUXOSTAT
  6. SLOW-K [Concomitant]
     Active Substance: POTASSIUM CHLORIDE
  7. SINGULAIR [Concomitant]
     Active Substance: MONTELUKAST SODIUM
  8. REVATIO [Concomitant]
     Active Substance: SILDENAFIL CITRATE
  9. FERROMIA [Concomitant]
     Active Substance: SODIUM FERROUS CITRATE

REACTIONS (5)
  - Gamma-glutamyltransferase increased [Not Recovered/Not Resolved]
  - Blood bilirubin increased [Not Recovered/Not Resolved]
  - Concomitant disease aggravated [Not Recovered/Not Resolved]
  - Hepatic function abnormal [Not Recovered/Not Resolved]
  - Aspartate aminotransferase increased [Not Recovered/Not Resolved]

NARRATIVE: CASE EVENT DATE: 201610
